FAERS Safety Report 18106895 (Version 1)
Quarter: 2020Q3

REPORT INFORMATION
  Report Type: Spontaneous
  Country: IL (occurrence: IL)
  Receive Date: 20200803
  Receipt Date: 20200803
  Transmission Date: 20201103
  Serious: Yes (Hospitalization, Other)
  Sender: FDA-Public Use
  Company Number: IL-GLAXOSMITHKLINE-IL2020EME138675

PATIENT
  Age: 64 Year
  Sex: Female

DRUGS (6)
  1. PREDNISONE. [Suspect]
     Active Substance: PREDNISONE
     Indication: PRODUCT USED FOR UNKNOWN INDICATION
     Dosage: UNK
  2. CLINDAMYCIN. [Suspect]
     Active Substance: CLINDAMYCIN
     Indication: PRODUCT USED FOR UNKNOWN INDICATION
     Dosage: 150 MG
     Route: 048
  3. NUCALA [Suspect]
     Active Substance: MEPOLIZUMAB
     Indication: ASTHMA
     Dosage: UNK
  4. ASPIRIN. [Suspect]
     Active Substance: ASPIRIN
     Indication: PRODUCT USED FOR UNKNOWN INDICATION
     Dosage: UNK
  5. ACYCLOVIR. [Suspect]
     Active Substance: ACYCLOVIR
     Indication: HERPES ZOSTER
     Dosage: UNK
  6. AUGMENTIN [Suspect]
     Active Substance: AMOXICILLIN\CLAVULANATE POTASSIUM
     Indication: PRODUCT USED FOR UNKNOWN INDICATION
     Dosage: UNK

REACTIONS (36)
  - Leukocytosis [Unknown]
  - Eyelid disorder [Unknown]
  - Lymphocytic infiltration [Unknown]
  - Orbital space occupying lesion [Unknown]
  - Herpes zoster [Unknown]
  - Condition aggravated [Unknown]
  - Periorbital pain [Unknown]
  - Diarrhoea [Unknown]
  - Nervousness [Unknown]
  - Rash [Unknown]
  - Asthenia [Unknown]
  - Eye disorder [Unknown]
  - Hypothyroidism [Unknown]
  - Rhinorrhoea [Unknown]
  - Ear discomfort [Unknown]
  - Palpitations [Unknown]
  - Drug hypersensitivity [Unknown]
  - Eye irritation [Unknown]
  - Cellulitis orbital [Unknown]
  - Ocular hyperaemia [Unknown]
  - Weight decreased [Unknown]
  - Rash macular [Unknown]
  - Alopecia [Unknown]
  - C-reactive protein increased [Unknown]
  - Ophthalmic vein thrombosis [Unknown]
  - Swelling of eyelid [Unknown]
  - Chest pain [Unknown]
  - Drug ineffective [Unknown]
  - Parophthalmia [Unknown]
  - Conjunctival irritation [Unknown]
  - Conjunctival oedema [Unknown]
  - Exophthalmos [Unknown]
  - Diplopia [Unknown]
  - Hyperthyroidism [Unknown]
  - Basedow^s disease [Unknown]
  - Asthma [Unknown]

NARRATIVE: CASE EVENT DATE: 2019
